FAERS Safety Report 5084664-8 (Version None)
Quarter: 2006Q3

REPORT INFORMATION
  Report Type: 
  Country: None (occurrence: None)
  Receive Date: 20060821
  Receipt Date: 20060809
  Transmission Date: 20061208
  Serious: Yes (Hospitalization)
  Sender: FDA-Public Use
  Company Number: CN-BRISTOL-MYERS SQUIBB COMPANY-13478250

PATIENT
  Age: 24 Year
  Sex: Female

DRUGS (3)
  1. ARIPIPRAZOLE [Suspect]
     Indication: SCHIZOPHRENIA
     Route: 048
     Dates: start: 20060619
  2. CLOZAPINE [Suspect]
     Indication: SCHIZOPHRENIA
     Dosage: 1 DOSAGE FORM = 100 MG DAILY UNTIL 19-JUN-2006, THEN DECREASED TO 50 MG/DAILY UNTIL 15-JUL-2006.
     Route: 048
     Dates: end: 20060715
  3. VALPROATE SODIUM [Concomitant]
     Indication: SCHIZOAFFECTIVE DISORDER
     Route: 048
     Dates: start: 20030505

REACTIONS (1)
  - DRUG WITHDRAWAL SYNDROME [None]
